FAERS Safety Report 12749741 (Version 1)
Quarter: 2016Q3

REPORT INFORMATION
  Report Type: Report from Study
  Country: US (occurrence: US)
  Receive Date: 20160916
  Receipt Date: 20160916
  Transmission Date: 20161109
  Serious: Yes (Hospitalization, Other)
  Sender: FDA-Public Use
  Company Number: US-GILEAD-2016-0233652

PATIENT
  Age: 54 Year
  Sex: Female

DRUGS (19)
  1. SPIRONOLACTONE. [Concomitant]
     Active Substance: SPIRONOLACTONE
  2. LEVOTHYROXIN [Concomitant]
     Active Substance: LEVOTHYROXINE
  3. AMBRISENTAN [Suspect]
     Active Substance: AMBRISENTAN
     Indication: PULMONARY HYPERTENSION
     Dosage: 5 MG, QD
     Route: 065
     Dates: start: 20150424
  4. GABAPENTIN. [Concomitant]
     Active Substance: GABAPENTIN
  5. HYDROXYZINE HCL [Concomitant]
     Active Substance: HYDROXYZINE HYDROCHLORIDE
  6. TRAZODONE [Concomitant]
     Active Substance: TRAZODONE HYDROCHLORIDE
  7. CARTIA XT [Concomitant]
     Active Substance: DILTIAZEM HYDROCHLORIDE
  8. DULOXETINE. [Concomitant]
     Active Substance: DULOXETINE
  9. PREDNISONE. [Concomitant]
     Active Substance: PREDNISONE
  10. HYDROCHLOROTHIAZIDE. [Concomitant]
     Active Substance: HYDROCHLOROTHIAZIDE
  11. CITALOPRAM [Concomitant]
     Active Substance: CITALOPRAM HYDROBROMIDE
  12. METOLAZONE. [Concomitant]
     Active Substance: METOLAZONE
  13. ALLOPURINOL. [Concomitant]
     Active Substance: ALLOPURINOL
  14. KLOR-CON [Concomitant]
     Active Substance: POTASSIUM CHLORIDE
  15. SIMVASTATIN. [Concomitant]
     Active Substance: SIMVASTATIN
  16. AMBRISENTAN [Suspect]
     Active Substance: AMBRISENTAN
     Dosage: 10 MG, UNK
     Route: 065
     Dates: start: 201507
  17. SILDENAFIL. [Concomitant]
     Active Substance: SILDENAFIL
  18. HYDRALAZINE [Concomitant]
     Active Substance: HYDRALAZINE HYDROCHLORIDE
  19. ELIQUIS [Concomitant]
     Active Substance: APIXABAN

REACTIONS (1)
  - Unevaluable event [Recovered/Resolved]

NARRATIVE: CASE EVENT DATE: 201608
